FAERS Safety Report 9663917 (Version 2)
Quarter: 2013Q4

REPORT INFORMATION
  Report Type: Spontaneous
  Country: US (occurrence: US)
  Receive Date: 20131101
  Receipt Date: 20131101
  Transmission Date: 20140711
  Serious: Yes (Other)
  Sender: FDA-Public Use
  Company Number: CHPA2010US16858

PATIENT
  Sex: Female

DRUGS (2)
  1. VOLTAREN GEL [Suspect]
     Indication: ARTHRALGIA
     Dosage: UNK, UNK
     Route: 061
  2. LIPITOR [Concomitant]
     Dosage: UNK, UNK

REACTIONS (3)
  - Bacterial infection [Not Recovered/Not Resolved]
  - Nausea [Unknown]
  - Off label use [Unknown]
